FAERS Safety Report 23854329 (Version 1)
Quarter: 2024Q2

REPORT INFORMATION
  Report Type: Report from Study
  Country: CO (occurrence: CO)
  Receive Date: 20240514
  Receipt Date: 20240514
  Transmission Date: 20240715
  Serious: Yes (Other)
  Sender: FDA-Public Use
  Company Number: CO-AstraZeneca-2024A109238

PATIENT
  Age: 228 Day
  Sex: Female
  Weight: 7.9 kg

DRUGS (2)
  1. SYNAGIS [Suspect]
     Active Substance: PALIVIZUMAB
     Indication: Respiratory syncytial virus infection
     Dosage: 15 MG/KG MONTHLY
     Route: 030
     Dates: start: 20231108
  2. SYNAGIS [Suspect]
     Active Substance: PALIVIZUMAB
     Dosage: 15 MG/KG MONTHLY
     Route: 030
     Dates: start: 20240215

REACTIONS (3)
  - Vomiting [Recovering/Resolving]
  - Diarrhoea [Recovering/Resolving]
  - Pyrexia [Recovering/Resolving]

NARRATIVE: CASE EVENT DATE: 20240503
